FAERS Safety Report 15192868 (Version 1)
Quarter: 2018Q3

REPORT INFORMATION
  Report Type: Report from Study
  Country: None (occurrence: BR)
  Receive Date: 20180725
  Receipt Date: 20180725
  Transmission Date: 20181010
  Serious: Yes (Hospitalization, Other)
  Sender: FDA-Public Use
  Company Number: BR-ABBVIE-18K-020-2425615-00

PATIENT
  Sex: Male

DRUGS (3)
  1. HUMIRA [Suspect]
     Active Substance: ADALIMUMAB
     Route: 058
     Dates: start: 201711, end: 201801
  2. AZULFIDINE [Concomitant]
     Active Substance: SULFASALAZINE
     Indication: PRODUCT USED FOR UNKNOWN INDICATION
  3. HUMIRA [Suspect]
     Active Substance: ADALIMUMAB
     Indication: ANKYLOSING SPONDYLITIS
     Route: 058
     Dates: start: 20170501, end: 2017

REACTIONS (15)
  - Hypophagia [Unknown]
  - Dyspnoea [Unknown]
  - Liver disorder [Unknown]
  - Insomnia [Unknown]
  - Infection [Unknown]
  - Appendicitis [Unknown]
  - Weight decreased [Unknown]
  - Hypertension [Unknown]
  - Dengue fever [Unknown]
  - Renal failure [Unknown]
  - Headache [Unknown]
  - Splenomegaly [Unknown]
  - Anaemia [Unknown]
  - Malaise [Unknown]
  - Nephrolithiasis [Unknown]

NARRATIVE: CASE EVENT DATE: 2017
